FAERS Safety Report 18176054 (Version 2)
Quarter: 2022Q1

REPORT INFORMATION
  Report Type: Spontaneous
  Country: BR (occurrence: BR)
  Receive Date: 20200820
  Receipt Date: 20220128
  Transmission Date: 20220423
  Serious: Yes (Other)
  Sender: FDA-Public Use
  Company Number: BR-TEVA-2020-BR-1815008

PATIENT
  Age: 42 Year
  Sex: Male

DRUGS (9)
  1. OXALIPLATIN [Suspect]
     Active Substance: OXALIPLATIN
     Indication: Adenocarcinoma of colon
     Dosage: AS PER FLOX PROTOCOL, AT INTERVALS OF 15 DAYS BETWEEN CYCLES; 12 CYCLES IN TOTAL
     Route: 050
     Dates: start: 201504, end: 201511
  2. OXALIPLATIN [Suspect]
     Active Substance: OXALIPLATIN
     Indication: Rectal adenocarcinoma
     Dosage: DURING THIRD PROTOCOL CHEMOTHERAPY
     Route: 050
     Dates: start: 2016
  3. FLUOROURACIL [Suspect]
     Active Substance: FLUOROURACIL
     Indication: Adenocarcinoma of colon
     Dosage: 620 MG (5 DAYS), TWO CYCLE PERFORMED
     Route: 065
     Dates: start: 201306
  4. FLUOROURACIL [Suspect]
     Active Substance: FLUOROURACIL
     Indication: Rectal adenocarcinoma
     Dosage: AS PER FLOX PROTOCOL, AT INTERVALS OF 15 DAYS BETWEEN CYCLES; 12 CYCLES IN TOTAL
     Route: 065
     Dates: start: 201504, end: 201511
  5. LEUCOVORIN CALCIUM [Suspect]
     Active Substance: LEUCOVORIN CALCIUM
     Indication: Adenocarcinoma of colon
     Dosage: AS PER FLOX PROTOCOL, AT INTERVALS OF 15 DAYS BETWEEN CYCLES; 12 CYCLES IN TOTAL
     Route: 065
     Dates: start: 201504, end: 201511
  6. LEUCOVORIN CALCIUM [Suspect]
     Active Substance: LEUCOVORIN CALCIUM
     Indication: Rectal adenocarcinoma
  7. IRINOTECAN [Suspect]
     Active Substance: IRINOTECAN
     Indication: Adenocarcinoma of colon
     Dosage: DURING THIRD PROTOCOL CHEMOTHERAPY
     Route: 065
  8. IRINOTECAN [Suspect]
     Active Substance: IRINOTECAN
     Indication: Rectal adenocarcinoma
  9. Mineral-oil [Concomitant]
     Indication: Constipation
     Route: 065

REACTIONS (11)
  - Hepatotoxicity [Recovering/Resolving]
  - Liver injury [Recovering/Resolving]
  - Burning sensation [Unknown]
  - Palpitations [Unknown]
  - Anxiety [Unknown]
  - Chest pain [Recovering/Resolving]
  - Flushing [Recovering/Resolving]
  - Vomiting [Recovering/Resolving]
  - Pruritus [Recovering/Resolving]
  - Papule [Recovering/Resolving]
  - Injection site urticaria [Recovering/Resolving]

NARRATIVE: CASE EVENT DATE: 20150301
